FAERS Safety Report 11633211 (Version 1)
Quarter: 2015Q4

REPORT INFORMATION
  Report Type: Spontaneous
  Country: US (occurrence: None)
  Receive Date: 20151014
  Receipt Date: 20151014
  Transmission Date: 20160304
  Serious: No
  Sender: FDA-Public Use
  Company Number: None

PATIENT
  Age: 73 Year
  Sex: Female
  Weight: 65.77 kg

DRUGS (8)
  1. CLONAZEPAM .5 MGM GENERIC [Suspect]
     Active Substance: CLONAZEPAM
     Indication: ANXIETY
     Dosage: 1-3 PILLS  2-3 X DA  MOUTH?APPROX 2005
     Route: 048
     Dates: start: 2005
  2. KLONOPIN [Concomitant]
     Active Substance: CLONAZEPAM
  3. MAG CITRATE [Concomitant]
  4. RITALIN [Suspect]
     Active Substance: METHYLPHENIDATE HYDROCHLORIDE
  5. MELATONIN [Concomitant]
     Active Substance: MELATONIN
  6. XANAX [Concomitant]
     Active Substance: ALPRAZOLAM
  7. NORVASC [Concomitant]
     Active Substance: AMLODIPINE BESYLATE
  8. VITAMIN D3 [Concomitant]
     Active Substance: CHOLECALCIFEROL

REACTIONS (8)
  - Balance disorder [None]
  - Paraesthesia [None]
  - Blood pressure increased [None]
  - Withdrawal syndrome [None]
  - Constipation [None]
  - Muscular weakness [None]
  - Gait disturbance [None]
  - Anxiety [None]
